FAERS Safety Report 9641957 (Version 1)
Quarter: 2013Q4

REPORT INFORMATION
  Report Type: Spontaneous
  Country: US (occurrence: US)
  Receive Date: 20131023
  Receipt Date: 20131023
  Transmission Date: 20140711
  Serious: Yes (Other)
  Sender: FDA-Public Use
  Company Number: US-PFIZER INC-2013301707

PATIENT
  Age: 69 Year
  Sex: Female

DRUGS (4)
  1. ENBREL [Suspect]
     Indication: RHEUMATOID ARTHRITIS
     Dosage: UNK
     Route: 065
     Dates: start: 2004, end: 2012
  2. METHOTREXATE SODIUM [Suspect]
     Dosage: UNK
     Route: 065
  3. PREDNISONE [Concomitant]
     Dosage: UNK
  4. HYDROXYCHLOROQUINE [Concomitant]
     Dosage: UNK

REACTIONS (1)
  - Cryptogenic cirrhosis [Unknown]
